FAERS Safety Report 18162995 (Version 1)
Quarter: 2020Q3

REPORT INFORMATION
  Report Type: Spontaneous
  Country: US (occurrence: US)
  Receive Date: 20200818
  Receipt Date: 20200818
  Transmission Date: 20201103
  Serious: Yes (Other)
  Sender: FDA-Public Use
  Company Number: None

PATIENT
  Age: 74 Year
  Sex: Female
  Weight: 81.65 kg

DRUGS (5)
  1. ARMOUR THYROID [Concomitant]
     Active Substance: THYROID, PORCINE
  2. EQUATE STOMACH RELIEF [Suspect]
     Active Substance: BISMUTH SUBSALICYLATE
     Indication: HELICOBACTER INFECTION
     Dates: start: 20200701, end: 20200731
  3. AMBIEN [Concomitant]
     Active Substance: ZOLPIDEM TARTRATE
  4. HCTZ [Concomitant]
     Active Substance: HYDROCHLOROTHIAZIDE
  5. ESTRACE [Concomitant]
     Active Substance: ESTRADIOL

REACTIONS (6)
  - Product formulation issue [None]
  - Cystitis [None]
  - Bladder discomfort [None]
  - Bladder irritation [None]
  - Discomfort [None]
  - Product complaint [None]

NARRATIVE: CASE EVENT DATE: 20200701
